FAERS Safety Report 7685595-7 (Version None)
Quarter: 2011Q3

REPORT INFORMATION
  Report Type: 
  Country: None (occurrence: None)
  Receive Date: 20110816
  Receipt Date: 20110811
  Transmission Date: 20111222
  Serious: Yes (Other)
  Sender: FDA-Public Use
  Company Number: GB-PFIZER INC-2011164588

PATIENT
  Age: 29 Year
  Sex: Female
  Weight: 62 kg

DRUGS (2)
  1. ACETAMINOPHEN AND CODEINE PHOSPHATE [Concomitant]
     Indication: ARTHRALGIA
     Dosage: 30/500MG
     Route: 048
     Dates: start: 20110704
  2. VARENICLINE TARTRATE [Suspect]
     Indication: SMOKING CESSATION THERAPY
     Dosage: 1 MG, 2X/DAY
     Route: 048
     Dates: start: 20110702, end: 20110716

REACTIONS (6)
  - NAUSEA [None]
  - AGGRESSION [None]
  - ANGER [None]
  - HALLUCINATION [None]
  - EMOTIONAL DISORDER [None]
  - HANGOVER [None]
